FAERS Safety Report 18730745 (Version 1)
Quarter: 2021Q1

REPORT INFORMATION
  Report Type: Spontaneous
  Country: CA (occurrence: CA)
  Receive Date: 20210112
  Receipt Date: 20210112
  Transmission Date: 20210419
  Serious: Yes (Death, Hospitalization)
  Sender: FDA-Public Use
  Company Number: CA-TEVA-2021-CA-1866139

PATIENT
  Age: 59 Year
  Sex: Female
  Weight: 47 kg

DRUGS (19)
  1. DOXORUBICIN HYDROCHLORIDE INJECTION [Suspect]
     Active Substance: DOXORUBICIN HYDROCHLORIDE
     Indication: BREAST CANCER
  2. FILGRASTIM [Concomitant]
     Active Substance: FILGRASTIM
  3. DIAMICRON [Concomitant]
     Active Substance: GLICLAZIDE
  4. ONDANSETRON [Concomitant]
     Active Substance: ONDANSETRON
  5. DIPHENHYDRAMINE. [Concomitant]
     Active Substance: DIPHENHYDRAMINE
  6. EMEND [Concomitant]
     Active Substance: APREPITANT
  7. OXAZEPAM. [Concomitant]
     Active Substance: OXAZEPAM
  8. RANITIDINE. [Concomitant]
     Active Substance: RANITIDINE
  9. PACLITAXEL INJECTION [Suspect]
     Active Substance: PACLITAXEL
     Indication: BREAST CANCER
     Route: 065
  10. DEXAMETHASONE. [Concomitant]
     Active Substance: DEXAMETHASONE
     Route: 065
  11. JANUVIA [Concomitant]
     Active Substance: SITAGLIPTIN PHOSPHATE
  12. JARDIANCE [Concomitant]
     Active Substance: EMPAGLIFLOZIN
  13. CYCLOPHOSPHAMIDE. [Suspect]
     Active Substance: CYCLOPHOSPHAMIDE
     Indication: BREAST CANCER
     Route: 065
  14. PROCHLORPERAZINE. [Suspect]
     Active Substance: PROCHLORPERAZINE
     Indication: BREAST CANCER
     Route: 065
  15. CLOBETASOL /00337102/ [Concomitant]
     Active Substance: CLOBETASOL
  16. PEGFILGRASTIM [Concomitant]
     Active Substance: PEGFILGRASTIM
  17. LORAZEPAM. [Concomitant]
     Active Substance: LORAZEPAM
  18. ROSUVASTATIN. [Concomitant]
     Active Substance: ROSUVASTATIN
  19. TYLENOL [Concomitant]
     Active Substance: ACETAMINOPHEN

REACTIONS (1)
  - Febrile neutropenia [Fatal]
